FAERS Safety Report 14602575 (Version 1)
Quarter: 2018Q1

REPORT INFORMATION
  Report Type: Report from Study
  Country: CO (occurrence: CO)
  Receive Date: 20180306
  Receipt Date: 20180306
  Transmission Date: 20180509
  Serious: Yes (Other)
  Sender: FDA-Public Use
  Company Number: CO-AMGEN-COLSL2018028299

PATIENT
  Age: 81 Year
  Sex: Female

DRUGS (1)
  1. PROLIA [Suspect]
     Active Substance: DENOSUMAB
     Indication: OSTEOPOROSIS POSTMENOPAUSAL
     Dosage: 60 MG, Q6MO
     Route: 058
     Dates: start: 20160908

REACTIONS (3)
  - Loss of personal independence in daily activities [Unknown]
  - Chronic obstructive pulmonary disease [Not Recovered/Not Resolved]
  - Cardiac disorder [Not Recovered/Not Resolved]
